FAERS Safety Report 10960676 (Version 1)
Quarter: 2015Q1

REPORT INFORMATION
  Report Type: Spontaneous
  Country: US (occurrence: None)
  Receive Date: 20150226
  Receipt Date: 20150226
  Transmission Date: 20150721
  Serious: Yes (Other)
  Sender: FDA-Public Use
  Company Number: TPA2012A04227

PATIENT
  Age: 46 Year
  Sex: Male
  Weight: 72.58 kg

DRUGS (16)
  1. STARLIX [Concomitant]
     Active Substance: NATEGLINIDE
  2. GLARGINE LANTUS (INSULIN GLARGINE) [Concomitant]
  3. CALCITRIOL. [Concomitant]
     Active Substance: CALCITRIOL
  4. FUROSEMIDE. [Concomitant]
     Active Substance: FUROSEMIDE
  5. METRONIDAZOL [Concomitant]
     Active Substance: METRONIDAZOLE
  6. NEXIUM [Concomitant]
     Active Substance: ESOMEPRAZOLE MAGNESIUM
  7. PROMETHAZINE [Concomitant]
     Active Substance: PROMETHAZINE\PROMETHAZINE HYDROCHLORIDE
  8. OXYCONTIN [Concomitant]
     Active Substance: OXYCODONE HYDROCHLORIDE
  9. KLOR-CON (POTASSIUM CHLORIDE) [Concomitant]
  10. ATENOLOL. [Concomitant]
     Active Substance: ATENOLOL
  11. CITALOPRAM [Concomitant]
     Active Substance: CITALOPRAM HYDROBROMIDE
  12. SODIUM BICAR [Concomitant]
  13. GLUCOTROL [Concomitant]
     Active Substance: GLIPIZIDE
  14. PANDIN (DEFLAZACORT) [Concomitant]
  15. PROGRAF [Concomitant]
     Active Substance: TACROLIMUS\TACROLIMUS ANHYDROUS
  16. ACTOS [Suspect]
     Active Substance: PIOGLITAZONE HYDROCHLORIDE
     Indication: TYPE 2 DIABETES MELLITUS
     Dates: start: 200601, end: 201109

REACTIONS (1)
  - Bladder cancer [None]

NARRATIVE: CASE EVENT DATE: 201104
